FAERS Safety Report 19734457 (Version 2)
Quarter: 2021Q4

REPORT INFORMATION
  Report Type: Spontaneous
  Country: US (occurrence: US)
  Receive Date: 20210823
  Receipt Date: 20211008
  Transmission Date: 20220303
  Serious: No
  Sender: FDA-Public Use
  Company Number: US-TEVA-2021-US-1940879

PATIENT
  Sex: Female

DRUGS (1)
  1. ESTRADIOL VAGINAL INSERTS [Suspect]
     Active Substance: ESTRADIOL
     Route: 067

REACTIONS (4)
  - Contusion [Unknown]
  - Device delivery system issue [Unknown]
  - Device issue [Unknown]
  - Device difficult to use [Unknown]
